FAERS Safety Report 8315039-3 (Version None)
Quarter: 2012Q2

REPORT INFORMATION
  Report Type: 
  Country: None (occurrence: None)
  Receive Date: 20120426
  Receipt Date: 20120417
  Transmission Date: 20120825
  Serious: Yes (Hospitalization)
  Sender: FDA-Public Use
  Company Number: BR-ASTRAZENECA-2012SE25670

PATIENT
  Age: 75 Year
  Sex: Male

DRUGS (4)
  1. CRESTOR [Suspect]
     Indication: BLOOD CHOLESTEROL INCREASED
     Route: 048
     Dates: start: 20100101
  2. EFFEXOR [Concomitant]
     Indication: DEPRESSION
     Route: 048
  3. MENELAT [Concomitant]
     Route: 048
  4. APRAZ [Concomitant]
     Indication: DEPRESSION
     Route: 048

REACTIONS (1)
  - ARTERIAL STENOSIS [None]
